FAERS Safety Report 18779302 (Version 1)
Quarter: 2021Q1

REPORT INFORMATION
  Report Type: Spontaneous
  Country: AU (occurrence: AU)
  Receive Date: 20210125
  Receipt Date: 20210125
  Transmission Date: 20210419
  Serious: No
  Sender: FDA-Public Use
  Company Number: AU-LUPIN PHARMACEUTICALS INC.-2020-11793

PATIENT
  Age: 19 Year
  Sex: Female

DRUGS (13)
  1. INSULIN [Suspect]
     Active Substance: INSULIN NOS
     Indication: FAMILIAL HYPERTRIGLYCERIDAEMIA
     Dosage: UNK
     Route: 058
  2. HEPARIN [Suspect]
     Active Substance: HEPARIN SODIUM
     Indication: HYPERTRIGLYCERIDAEMIA
     Dosage: 5000 INTERNATIONAL UNIT, TID
     Route: 058
  3. HEPARIN [Suspect]
     Active Substance: HEPARIN SODIUM
     Indication: PANCREATITIS
  4. HEPARIN [Suspect]
     Active Substance: HEPARIN SODIUM
     Indication: FAMILIAL HYPERTRIGLYCERIDAEMIA
  5. GEMFIBROZIL. [Suspect]
     Active Substance: GEMFIBROZIL
     Indication: HYPERTRIGLYCERIDAEMIA
     Dosage: 200 MILLIGRAM, TID
     Route: 065
  6. ALBUMIN [Suspect]
     Active Substance: ALBUMIN HUMAN
     Indication: FAMILIAL HYPERTRIGLYCERIDAEMIA
  7. BETAMETHASONE. [Suspect]
     Active Substance: BETAMETHASONE
     Indication: MATERNAL THERAPY TO ENHANCE FOETAL LUNG MATURITY
     Dosage: UNK
     Route: 065
  8. GEMFIBROZIL. [Suspect]
     Active Substance: GEMFIBROZIL
     Indication: PANCREATITIS
  9. ALBUMIN [Suspect]
     Active Substance: ALBUMIN HUMAN
     Indication: HYPERTRIGLYCERIDAEMIA
     Dosage: UNK?VIA CENTRAL VENOUS ACCESS
     Route: 065
  10. INSULIN [Suspect]
     Active Substance: INSULIN NOS
     Indication: HYPERTRIGLYCERIDAEMIA
     Dosage: UNK?INFUSION
     Route: 065
  11. ALBUMIN [Suspect]
     Active Substance: ALBUMIN HUMAN
     Indication: PANCREATITIS
  12. DEXTROSE. [Suspect]
     Active Substance: DEXTROSE
     Indication: FAMILIAL HYPERTRIGLYCERIDAEMIA
     Dosage: UNK
     Route: 065
  13. INSULIN [Suspect]
     Active Substance: INSULIN NOS
     Indication: PANCREATITIS

REACTIONS (2)
  - Maternal exposure during pregnancy [Unknown]
  - Normal newborn [Unknown]
